FAERS Safety Report 5228461-9 (Version None)
Quarter: 2007Q1

REPORT INFORMATION
  Report Type: 
  Country: None (occurrence: None)
  Receive Date: 20070131
  Receipt Date: 20070131
  Transmission Date: 20070707
  Serious: Yes (Other)
  Sender: FDA-Public Use
  Company Number: None

PATIENT
  Age: 50 Year
  Sex: Female
  Weight: 125.7 kg

DRUGS (1)
  1. FOSINOPRIL SODIUM [Suspect]
     Indication: HYPERTENSION
     Dosage: 20 MG ONCE DAILY OGT
     Route: 050
     Dates: start: 20070110, end: 20070112

REACTIONS (1)
  - ANGIOEDEMA [None]
